FAERS Safety Report 7949530 (Version 3)
Quarter: 2012Q4

REPORT INFORMATION
  Report Type: 
  Country: US (occurrence: US)
  Receive Date: 20110518
  Receipt Date: 20121128
  Transmission Date: 20130627
  Serious: Yes (Hospitalization)
  Sender: FDA-Public Use
  Company Number: US-BAYER-2011-041915

PATIENT
  Age: 43 Year
  Sex: Female
  Weight: 65.31 kg

DRUGS (12)
  1. YASMIN [Suspect]
     Indication: POLYCYSTIC OVARY
     Dosage: UNK
     Dates: start: 200305, end: 200808
  2. OCELLA [Suspect]
     Indication: POLYCYSTIC OVARY
     Dosage: UNK
     Dates: start: 200809, end: 201004
  3. YAZ [Suspect]
     Indication: POLYCYSTIC OVARY
     Dosage: UNK
     Dates: start: 201005, end: 20100616
  4. LEVOTHYROXINE [Concomitant]
     Indication: HYPOTHYROIDISM
     Dosage: UNK
     Route: 048
     Dates: start: 1992
  5. METFORMIN [Concomitant]
     Indication: POLYCYSTIC OVARY
     Dosage: UNK UNK, BID
     Route: 048
     Dates: start: 2003
  6. RESTORIL [Concomitant]
     Indication: ANXIETY
     Dosage: UNK
     Route: 048
     Dates: start: 2010
  7. KLONOPIN [Concomitant]
     Indication: ANXIETY
     Dosage: UNK UNK, BID
     Route: 048
     Dates: start: 2010
  8. TOPIRAMATE [Concomitant]
     Indication: MIGRAINE
     Dosage: UNK
     Route: 048
     Dates: start: 2010
  9. ADDERALL [Concomitant]
     Indication: ANXIETY
     Dosage: UNK
     Dates: start: 2006
  10. SPIRONOLACTONE [Concomitant]
     Indication: ANXIETY
     Dosage: UNK
     Route: 048
     Dates: start: 2003
  11. OMEPRAZOLE [Concomitant]
     Indication: GERD
     Dosage: UNK
     Route: 048
     Dates: start: 1990
  12. LAMOTRIGINE [Concomitant]
     Indication: POLYCYSTIC OVARY
     Dosage: UNK
     Route: 048
     Dates: start: 2010

REACTIONS (13)
  - Pulmonary embolism [Unknown]
  - Deep vein thrombosis [Unknown]
  - Injury [None]
  - Pain [None]
  - Emotional distress [None]
  - Anxiety [Unknown]
  - Pain in extremity [Unknown]
  - Chest pain [Unknown]
  - Dyspnoea [Unknown]
  - Dizziness postural [Unknown]
  - Depression [Unknown]
  - Oedema peripheral [Unknown]
  - Heart rate decreased [Unknown]
